FAERS Safety Report 11095377 (Version 1)
Quarter: 2015Q2

REPORT INFORMATION
  Report Type: Spontaneous
  Country: US (occurrence: US)
  Receive Date: 20150506
  Receipt Date: 20150506
  Transmission Date: 20150821
  Serious: Yes (Other)
  Sender: FDA-Public Use
  Company Number: US-BAXTER-2015BAX022661

PATIENT
  Age: 52 Year
  Sex: Male
  Weight: 105.5 kg

DRUGS (3)
  1. BICARB [Concomitant]
     Indication: HYPOTENSION
     Route: 042
     Dates: start: 20150115
  2. GAMMAGARD LIQUID [Suspect]
     Active Substance: HUMAN IMMUNOGLOBULIN G
     Indication: HYPOGAMMAGLOBULINAEMIA
     Dosage: FIRST DOSE
     Route: 042
     Dates: start: 20150116, end: 20150116
  3. LEVOPHED [Concomitant]
     Active Substance: NOREPINEPHRINE BITARTRATE
     Indication: PRODUCT USED FOR UNKNOWN INDICATION
     Dosage: 18 MICROGRAMS PER MINUTE (MCG/MIN)
     Route: 042

REACTIONS (2)
  - Hypotension [Unknown]
  - Incorrect drug administration rate [Recovered/Resolved]

NARRATIVE: CASE EVENT DATE: 20150116
